FAERS Safety Report 8214148-7 (Version None)
Quarter: 2012Q1

REPORT INFORMATION
  Report Type: 
  Country: None (occurrence: None)
  Receive Date: 20120314
  Receipt Date: 20120314
  Transmission Date: 20120608
  Serious: Yes (Hospitalization)
  Sender: FDA-Public Use
  Company Number: None

PATIENT
  Age: 59 Year
  Sex: Male
  Weight: 98 kg

DRUGS (5)
  1. OXYCODONE HCL [Concomitant]
  2. TYLENOL [Concomitant]
  3. TRAZODONE HCL [Concomitant]
  4. ACYCLOVIR [Concomitant]
  5. COUMADIN [Suspect]
     Dosage: 2.5MG M-F PO  RECENT  : 5MG SAT S PO
     Route: 048

REACTIONS (1)
  - INTERNATIONAL NORMALISED RATIO INCREASED [None]
